FAERS Safety Report 11473726 (Version 1)
Quarter: 2015Q3

REPORT INFORMATION
  Report Type: Spontaneous
  Country: US (occurrence: None)
  Receive Date: 20150902
  Receipt Date: 20150902
  Transmission Date: 20151125
  Serious: Yes (Hospitalization)
  Sender: FDA-Public Use
  Company Number: A-NJ2014-104611

PATIENT
  Age: 46 Year
  Sex: Female

DRUGS (3)
  1. RIOCIGUAT [Concomitant]
     Active Substance: RIOCIGUAT
  2. VELETRI [Suspect]
     Active Substance: EPOPROSTENOL
     Indication: PULMONARY ARTERIAL HYPERTENSION
     Dosage: 25.75 NG/KG PER MIN
     Route: 042
     Dates: start: 20130516
  3. TREPROSTINIL [Concomitant]
     Active Substance: TREPROSTINIL

REACTIONS (12)
  - Epistaxis [None]
  - Anaemia [None]
  - Drug dose omission [None]
  - Dyspnoea [None]
  - Vomiting [None]
  - Blood pressure systolic decreased [None]
  - Headache [None]
  - Nausea [None]
  - Dizziness [None]
  - Fluid retention [None]
  - Fatigue [None]
  - Catheter site inflammation [None]

NARRATIVE: CASE EVENT DATE: 20141012
